FAERS Safety Report 4801724-4 (Version None)
Quarter: 2005Q4

REPORT INFORMATION
  Report Type: 
  Country: None (occurrence: None)
  Receive Date: 20051012
  Receipt Date: 20050929
  Transmission Date: 20060501
  Serious: Yes (Death)
  Sender: FDA-Public Use
  Company Number: 2005135573

PATIENT

DRUGS (1)
  1. VFEND [Suspect]
     Indication: BRONCHOPULMONARY ASPERGILLOSIS
     Dosage: ORAL
     Route: 048
     Dates: start: 20050901

REACTIONS (3)
  - CARDIO-RESPIRATORY ARREST [None]
  - HEADACHE [None]
  - SUDDEN DEATH [None]
